FAERS Safety Report 17030208 (Version 1)
Quarter: 2019Q4

REPORT INFORMATION
  Report Type: Spontaneous
  Country: US (occurrence: US)
  Receive Date: 20191114
  Receipt Date: 20191114
  Transmission Date: 20200122
  Serious: No
  Sender: FDA-Public Use
  Company Number: US-009507513-1911USA004650

PATIENT
  Age: 18 Year
  Sex: Female
  Weight: 92.52 kg

DRUGS (1)
  1. NEXPLANON [Suspect]
     Active Substance: ETONOGESTREL
     Indication: CONTRACEPTION
     Dosage: 1IMPLANT, 3 YEARS, SUBDERMAL, LEFT ARM
     Route: 059
     Dates: start: 20191105

REACTIONS (3)
  - Nausea [Not Recovered/Not Resolved]
  - Device deployment issue [Not Recovered/Not Resolved]
  - Implant site pain [Not Recovered/Not Resolved]

NARRATIVE: CASE EVENT DATE: 201911
